FAERS Safety Report 5871110-7 (Version None)
Quarter: 2008Q3

REPORT INFORMATION
  Report Type: 
  Country: None (occurrence: None)
  Receive Date: 20080904
  Receipt Date: 20080826
  Transmission Date: 20090109
  Serious: Yes (Other)
  Sender: FDA-Public Use
  Company Number: US-PFIZER INC-2008058301

PATIENT
  Sex: Male
  Weight: 79.4 kg

DRUGS (4)
  1. CELEBREX [Suspect]
     Indication: BACK PAIN
     Route: 048
     Dates: start: 19990101, end: 20070101
  2. ANTIHYPERTENSIVES [Concomitant]
  3. NEURONTIN [Concomitant]
  4. ULTRAM [Concomitant]

REACTIONS (2)
  - HYPERTENSION [None]
  - NERVE COMPRESSION [None]
